FAERS Safety Report 12607255 (Version 1)
Quarter: 2016Q3

REPORT INFORMATION
  Report Type: Spontaneous
  Country: NL (occurrence: NL)
  Receive Date: 20160729
  Receipt Date: 20160729
  Transmission Date: 20161109
  Serious: Yes (Hospitalization)
  Sender: FDA-Public Use
  Company Number: NL-GILEAD-2016-0225418

PATIENT
  Age: 57 Year
  Sex: Male
  Weight: 79 kg

DRUGS (1)
  1. EVIPLERA [Suspect]
     Active Substance: EMTRICITABINE\RILPIVIRINE\TENOFOVIR DISOPROXIL FUMARATE
     Indication: HIV INFECTION
     Dosage: 1 DF, QD
     Route: 065
     Dates: start: 20151012

REACTIONS (1)
  - Tendon rupture [Recovering/Resolving]

NARRATIVE: CASE EVENT DATE: 201607
